FAERS Safety Report 17584548 (Version 1)
Quarter: 2020Q1

REPORT INFORMATION
  Report Type: Spontaneous
  Country: US (occurrence: US)
  Receive Date: 20200326
  Receipt Date: 20200326
  Transmission Date: 20200409
  Serious: No
  Sender: FDA-Public Use
  Company Number: US-ELI_LILLY_AND_COMPANY-US202003000292

PATIENT
  Sex: Male

DRUGS (3)
  1. EMGALITY [Suspect]
     Active Substance: GALCANEZUMAB-GNLM
     Indication: MIGRAINE
     Dosage: 120 MG, MONTHLY (1/M)
     Route: 058
  2. AIMOVIG [Concomitant]
     Active Substance: ERENUMAB-AOOE
     Indication: MIGRAINE
     Dosage: UNK UNK, UNKNOWN
     Route: 065
  3. TROKENDI [Concomitant]
     Active Substance: TOPIRAMATE
     Indication: CONFUSIONAL STATE
     Dosage: UNK UNK, UNKNOWN
     Route: 065

REACTIONS (5)
  - Amnesia [Unknown]
  - Confusional state [Unknown]
  - Migraine [Unknown]
  - Therapeutic response shortened [Unknown]
  - Hypersomnia [Unknown]
